FAERS Safety Report 6441116-8 (Version None)
Quarter: 2009Q4

REPORT INFORMATION
  Report Type: 
  Country: None (occurrence: None)
  Receive Date: 20091113
  Receipt Date: 20091113
  Transmission Date: 20100525
  Serious: Yes (Life-Threatening, Hospitalization)
  Sender: FDA-Public Use
  Company Number: None

PATIENT
  Age: 28 Year
  Sex: Female
  Weight: 77.1115 kg

DRUGS (2)
  1. FLUDROCORTISONE ACETATE [Suspect]
     Indication: HYPOTENSION
     Dosage: TAKE 1/2 TABLET DAILY PO
     Route: 048
     Dates: start: 20080515, end: 20091112
  2. FLUDROCORTISONE ACETATE [Suspect]
     Indication: SYNCOPE
     Dosage: TAKE 1/2 TABLET DAILY PO
     Route: 048
     Dates: start: 20080515, end: 20091112

REACTIONS (2)
  - INTRACRANIAL ANEURYSM [None]
  - PRODUCT QUALITY ISSUE [None]
